FAERS Safety Report 21891492 (Version 1)
Quarter: 2023Q1

REPORT INFORMATION
  Report Type: Spontaneous
  Country: DE (occurrence: DE)
  Receive Date: 20230120
  Receipt Date: 20230120
  Transmission Date: 20230417
  Serious: Yes (Congenital Anomaly, Other)
  Sender: FDA-Public Use
  Company Number: DE-EMBRYOTOX-202117383

PATIENT
  Age: 1 Day
  Sex: Male
  Weight: 3.24 kg

DRUGS (4)
  1. ARIPIPRAZOLE [Suspect]
     Active Substance: ARIPIPRAZOLE
     Indication: Borderline personality disorder
     Dosage: 5 MG, QD
     Route: 065
     Dates: start: 20210421, end: 20220118
  2. LITHIUM CARBONATE [Suspect]
     Active Substance: LITHIUM CARBONATE
     Indication: Schizoaffective disorder
     Dosage: 900 MG, QD  INITIAL 900MG DAILY, FROM WEEK 32 DOSAGE REDUCED 2 SEPARATED DOSES
     Route: 065
     Dates: start: 20210421, end: 20220106
  3. LEVOMEPROMAZINE [Suspect]
     Active Substance: LEVOMEPROMAZINE
     Indication: Borderline personality disorder
     Dosage: 50 MG, QD
     Route: 065
     Dates: start: 20210421, end: 20220113
  4. IBUPROFEN [Concomitant]
     Active Substance: IBUPROFEN
     Indication: Headache
     Dosage: IF REQUIRED
     Route: 065

REACTIONS (3)
  - Hypospadias [Not Recovered/Not Resolved]
  - Cerebral calcification [Recovered/Resolved]
  - Foetal exposure during pregnancy [Unknown]

NARRATIVE: CASE EVENT DATE: 20220101
